FAERS Safety Report 6877504-5 (Version None)
Quarter: 2010Q3

REPORT INFORMATION
  Report Type: 
  Country: None (occurrence: None)
  Receive Date: 20100727
  Receipt Date: 20091118
  Transmission Date: 20110219
  Serious: No
  Sender: FDA-Public Use
  Company Number: US-ABBOTT-09P-163-0610130-00

PATIENT
  Sex: Female
  Weight: 95.34 kg

DRUGS (3)
  1. SYNTHROID [Suspect]
     Indication: HYPOTHYROIDISM
     Route: 048
     Dates: start: 20091118
  2. ERYTHROMYCIN [Concomitant]
     Indication: BRONCHITIS
  3. ERYTHROMYCIN [Concomitant]
     Indication: UPPER RESPIRATORY TRACT INFECTION

REACTIONS (5)
  - ANXIETY [None]
  - CHEST DISCOMFORT [None]
  - DYSGEUSIA [None]
  - HEADACHE [None]
  - MALAISE [None]
